FAERS Safety Report 10666025 (Version 2)
Quarter: 2014Q4

REPORT INFORMATION
  Report Type: Spontaneous
  Country: JP (occurrence: JP)
  Receive Date: 20141219
  Receipt Date: 20141219
  Transmission Date: 20150529
  Serious: Yes (Hospitalization)
  Sender: FDA-Public Use
  Company Number: JP-BAYER-2014-108218

PATIENT
  Age: 73 Year
  Sex: Male
  Weight: 56 kg

DRUGS (13)
  1. XARELTO [Suspect]
     Active Substance: RIVAROXABAN
     Indication: THROMBOSIS PROPHYLAXIS
     Dosage: 15 MG, QD
     Route: 048
     Dates: start: 20140627, end: 20140709
  2. CADUET [Concomitant]
     Active Substance: AMLODIPINE BESYLATE\ATORVASTATIN CALCIUM
     Indication: HYPERTENSION
     Dosage: UNK
     Route: 048
     Dates: start: 20101008
  3. STARSIS [Concomitant]
     Active Substance: NATEGLINIDE
     Indication: DIABETES MELLITUS
     Dosage: DAILY DOSE 90 MG
     Route: 048
     Dates: start: 20091107
  4. PLETAAL [Suspect]
     Active Substance: CILOSTAZOL
     Indication: PERIPHERAL ARTERIAL OCCLUSIVE DISEASE
     Dosage: DAILY DOSE 200 MG
     Route: 048
     Dates: end: 20140709
  5. NESINA [Concomitant]
     Active Substance: ALOGLIPTIN BENZOATE
     Dosage: UNK
     Route: 048
  6. PLETAAL [Suspect]
     Active Substance: CILOSTAZOL
     Indication: PERIPHERAL ARTERIAL OCCLUSIVE DISEASE
     Dosage: DAILY DOSE 200 MG
     Route: 048
     Dates: start: 20130422, end: 20140623
  7. TAKEPRON [Concomitant]
     Active Substance: LANSOPRAZOLE
     Indication: GASTRITIS
     Dosage: DAILY DOSE 15 MG
     Route: 048
     Dates: start: 20091107
  8. AZILSARTAN [Concomitant]
     Active Substance: AZILSARTAN KAMEDOXOMIL
     Indication: HYPERTENSION
     Dosage: DAILY DOSE 20 MG
     Route: 048
     Dates: start: 20140120
  9. CADUET [Concomitant]
     Active Substance: AMLODIPINE BESYLATE\ATORVASTATIN CALCIUM
     Indication: HYPERLIPIDAEMIA
  10. SUNRYTHM [Concomitant]
     Active Substance: PILSICAINIDE HYDROCHLORIDE
     Indication: ATRIAL FIBRILLATION
     Dosage: DAILY DOSE 150 MG
     Route: 048
     Dates: start: 20141107
  11. BAYASPIRIN [Suspect]
     Active Substance: ASPIRIN
     Indication: ATRIAL FIBRILLATION
     Dosage: DAILY DOSE 200 MG
     Route: 048
     Dates: start: 20091107, end: 20140623
  12. ARTIST [Concomitant]
     Active Substance: CARVEDILOL
     Indication: HYPERTENSION
     Dosage: DAILY DOSE 5 MG
     Route: 048
     Dates: start: 20091107
  13. BROTIZOLAM [Concomitant]
     Active Substance: BROTIZOLAM
     Dosage: UNK
     Route: 048

REACTIONS (3)
  - Muscular weakness [Recovering/Resolving]
  - Haemorrhagic cerebral infarction [Recovering/Resolving]
  - Cerebral infarction [Recovered/Resolved]

NARRATIVE: CASE EVENT DATE: 20140623
